FAERS Safety Report 9301400 (Version 1)
Quarter: 2013Q2

REPORT INFORMATION
  Report Type: Report from Study
  Country: US (occurrence: US)
  Receive Date: 20130521
  Receipt Date: 20130521
  Transmission Date: 20140414
  Serious: Yes (Hospitalization)
  Sender: FDA-Public Use
  Company Number: US-ABBOTT-13P-163-1090124-00

PATIENT
  Age: 89 Year
  Sex: Female
  Weight: 85.81 kg

DRUGS (5)
  1. HUMIRA [Suspect]
     Indication: RHEUMATOID ARTHRITIS
     Route: 058
     Dates: end: 201212
  2. HUMIRA [Suspect]
     Route: 058
     Dates: start: 201304
  3. DIOVAN [Concomitant]
     Indication: HYPERTENSION
  4. COREG [Concomitant]
     Indication: HYPERTENSION
  5. SULAR [Concomitant]
     Indication: HYPERTENSION

REACTIONS (2)
  - VIIth nerve paralysis [Recovering/Resolving]
  - Pneumonia [Recovered/Resolved]
